FAERS Safety Report 24365401 (Version 1)
Quarter: 2024Q3

REPORT INFORMATION
  Report Type: Spontaneous
  Country: US (occurrence: US)
  Receive Date: 20240926
  Receipt Date: 20240926
  Transmission Date: 20241016
  Serious: Yes (Other)
  Sender: ZYDUS PHARM
  Company Number: US-CADILA HEALTHCARE LIMITED-US-ZYDUS-112366

PATIENT

DRUGS (4)
  1. CARIPRAZINE [Suspect]
     Active Substance: CARIPRAZINE
     Indication: Bipolar II disorder
     Dosage: 1.5 MILLIGRAM
     Route: 065
  2. LURASIDONE [Suspect]
     Active Substance: LURASIDONE
     Indication: Bipolar II disorder
     Dosage: 20 MILLIGRAM, QD
     Route: 065
  3. LUMATEPERONE [Suspect]
     Active Substance: LUMATEPERONE
     Indication: Bipolar II disorder
     Dosage: 42 MILLIGRAM
     Route: 065
  4. LUMATEPERONE [Suspect]
     Active Substance: LUMATEPERONE
     Dosage: 21 MILLIGRAM, QD
     Route: 065

REACTIONS (1)
  - Dyspnoea at rest [Recovering/Resolving]
